FAERS Safety Report 8511228 (Version 4)
Quarter: 2012Q4

REPORT INFORMATION
  Report Type: 
  Country: US (occurrence: US)
  Receive Date: 20120413
  Receipt Date: 20121121
  Transmission Date: 20130627
  Serious: No
  Sender: FDA-Public Use
  Company Number: US-ASTRAZENECA-2010SE14972

PATIENT
  Age: 73 Year
  Sex: Male

DRUGS (2)
  1. NEXIUM [Suspect]
     Route: 048
  2. PLAVIX [Concomitant]

REACTIONS (10)
  - Herpes zoster [Unknown]
  - Dyspnoea [Unknown]
  - Hypoacusis [Unknown]
  - Nerve injury [Unknown]
  - Diabetes mellitus [Unknown]
  - Cardiac disorder [Unknown]
  - Chronic obstructive pulmonary disease [Unknown]
  - Ear disorder [Unknown]
  - Gastrooesophageal reflux disease [Unknown]
  - Herpes zoster oticus [Unknown]
